FAERS Safety Report 8977890 (Version 2)
Quarter: 2012Q4

REPORT INFORMATION
  Report Type: 
  Country: NL (occurrence: NL)
  Receive Date: 20121220
  Receipt Date: 20121224
  Transmission Date: 20130627
  Serious: Yes (Death)
  Sender: FDA-Public Use
  Company Number: PHHY2012NL117203

PATIENT
  Age: 87 Year
  Sex: Male

DRUGS (3)
  1. ZOMETA [Suspect]
     Indication: PROSTATE CANCER METASTATIC
     Dosage: 4 mg,per 100ml once per 28 days
     Route: 042
  2. ZOMETA [Suspect]
     Dosage: 4 mg,per 100ml once per 28 days
     Route: 042
     Dates: start: 20100621
  3. ZOMETA [Suspect]
     Dosage: 4 mg,per 100ml once per 28 days
     Route: 042
     Dates: start: 20121029

REACTIONS (6)
  - Death [Fatal]
  - Decreased appetite [Unknown]
  - Dysstasia [Unknown]
  - Fatigue [Unknown]
  - Nausea [Unknown]
  - Asthenia [Unknown]
